FAERS Safety Report 12808891 (Version 4)
Quarter: 2017Q1

REPORT INFORMATION
  Report Type: Report from Study
  Country: BR (occurrence: BR)
  Receive Date: 20161004
  Receipt Date: 20170127
  Transmission Date: 20170428
  Serious: Yes (Other)
  Sender: FDA-Public Use
  Company Number: PHHY2016BR136538

PATIENT
  Age: 21 Year
  Sex: Female
  Weight: 63 kg

DRUGS (1)
  1. GILENYA [Suspect]
     Active Substance: FINGOLIMOD HYDROCHLORIDE
     Indication: MULTIPLE SCLEROSIS
     Dosage: 0.5 MG, QD
     Route: 048
     Dates: start: 20160921

REACTIONS (11)
  - Memory impairment [Unknown]
  - Influenza [Recovered/Resolved]
  - Dizziness [Unknown]
  - Malaise [Recovering/Resolving]
  - Leukopenia [Unknown]
  - Candida infection [Not Recovered/Not Resolved]
  - Somnolence [Recovering/Resolving]
  - Lymphopenia [Unknown]
  - Drug monitoring procedure not performed [Unknown]
  - Dizziness [Recovering/Resolving]
  - Pyrexia [Recovered/Resolved]

NARRATIVE: CASE EVENT DATE: 20161011
